FAERS Safety Report 12055058 (Version 1)
Quarter: 2016Q1

REPORT INFORMATION
  Report Type: Spontaneous
  Country: US (occurrence: US)
  Receive Date: 20160209
  Receipt Date: 20160209
  Transmission Date: 20160526
  Serious: Yes (Other)
  Sender: FDA-Public Use
  Company Number: US-BAYER-2016-019865

PATIENT
  Age: 38 Year
  Sex: Female

DRUGS (3)
  1. ACETYLSALICYLIC ACID (} 100 MG) [Suspect]
     Active Substance: ASPIRIN
     Dosage: 1 DF, QD
  2. PROGESTERONE. [Concomitant]
     Active Substance: PROGESTERONE
     Dosage: AT 8 WEEKS OF GESTATION
     Route: 067
  3. HEPARIN [Concomitant]
     Active Substance: HEPARIN SODIUM
     Dosage: 5000 UNITS, BID
     Route: 058

REACTIONS (5)
  - Maternal exposure during pregnancy [None]
  - Placental infarction [None]
  - Drug ineffective for unapproved indication [None]
  - Oligohydramnios [None]
  - Foetal death [None]
